FAERS Safety Report 12327179 (Version 2)
Quarter: 2016Q2

REPORT INFORMATION
  Report Type: Report from Study
  Country: BR (occurrence: BR)
  Receive Date: 20160503
  Receipt Date: 20160519
  Transmission Date: 20160815
  Serious: Yes (Hospitalization, Other)
  Sender: FDA-Public Use
  Company Number: PHHY2016BR059859

PATIENT
  Sex: Female
  Weight: 67 kg

DRUGS (3)
  1. EXJADE [Suspect]
     Active Substance: DEFERASIROX
     Indication: THALASSAEMIA
  2. ACIDO FOLICO//FOLIC ACID [Concomitant]
     Active Substance: FOLIC ACID
     Indication: PRODUCT USED FOR UNKNOWN INDICATION
     Dosage: 5 MG, QD
     Route: 048
  3. EXJADE [Suspect]
     Active Substance: DEFERASIROX
     Indication: SICKLE CELL ANAEMIA
     Dosage: 20 MG/KG, QD (3 DF OF 500 MG ONCE DAILY)
     Route: 048

REACTIONS (8)
  - Haemoglobin decreased [Recovered/Resolved]
  - Hepatitis [Recovering/Resolving]
  - Abdominal pain [Recovering/Resolving]
  - Diarrhoea [Recovering/Resolving]
  - Gastrointestinal infection [Recovering/Resolving]
  - Vomiting [Recovering/Resolving]
  - Serum ferritin increased [Unknown]
  - Abdominal distension [Recovering/Resolving]
